FAERS Safety Report 4516473-X (Version None)
Quarter: 2004Q4

REPORT INFORMATION
  Report Type: 
  Country: None (occurrence: None)
  Receive Date: 20041027
  Receipt Date: 20040720
  Transmission Date: 20050328
  Serious: No
  Sender: FDA-Public Use
  Company Number: US084164

PATIENT
  Age: 37 Year
  Sex: Male

DRUGS (6)
  1. SENSIPAR [Suspect]
     Indication: HYPERPARATHYROIDISM SECONDARY
     Dosage: 30 MG, 1 IN 1 DAYS, PO
     Route: 048
     Dates: start: 20040618
  2. DOXERCALCEROL [Concomitant]
  3. TRIAMCINOLONE ACETONIDE [Concomitant]
  4. PHOSLO [Concomitant]
  5. LOSARTAN POTASSIUM [Concomitant]
  6. ATORVASTATIN [Concomitant]

REACTIONS (2)
  - FEELING JITTERY [None]
  - INSOMNIA [None]
